FAERS Safety Report 20659052 (Version 2)
Quarter: 2022Q2

REPORT INFORMATION
  Report Type: Spontaneous
  Country: US (occurrence: US)
  Receive Date: 20220331
  Receipt Date: 20220425
  Transmission Date: 20220720
  Serious: No
  Sender: FDA-Public Use
  Company Number: US-BAYER-2022A046924

PATIENT
  Age: 31 Year
  Sex: Female
  Weight: 75.8 kg

DRUGS (11)
  1. MIRENA [Suspect]
     Active Substance: LEVONORGESTREL
     Indication: Contraception
     Dosage: 20?G/DAY
     Route: 015
     Dates: start: 20210916, end: 202202
  2. HYDROCHLOROTHIAZIDE\LISINOPRIL [Concomitant]
     Active Substance: HYDROCHLOROTHIAZIDE\LISINOPRIL
     Dosage: UNK UNK, QD
     Route: 048
  3. VITAMIN D2 [Concomitant]
     Active Substance: ERGOCALCIFEROL
  4. IBUPROFEN [Concomitant]
     Active Substance: IBUPROFEN
  5. PROVERA [Concomitant]
     Active Substance: MEDROXYPROGESTERONE ACETATE
  6. MOTRIN [Concomitant]
     Active Substance: IBUPROFEN
  7. CYTOTEC [Concomitant]
     Active Substance: MISOPROSTOL
  8. NAPROXEN [Concomitant]
     Active Substance: NAPROXEN
  9. ORTHO TRI CYCLEN LO [Concomitant]
     Active Substance: ETHINYL ESTRADIOL\NORGESTIMATE
  10. ZANTAC [Concomitant]
     Active Substance: RANITIDINE HYDROCHLORIDE
  11. ALDACTONE [Concomitant]
     Active Substance: SPIRONOLACTONE

REACTIONS (3)
  - Heavy menstrual bleeding [None]
  - Device expulsion [Recovered/Resolved]
  - Uterine leiomyoma [None]

NARRATIVE: CASE EVENT DATE: 20220201
